FAERS Safety Report 14649613 (Version 1)
Quarter: 2018Q1

REPORT INFORMATION
  Report Type: Spontaneous
  Country: US (occurrence: US)
  Receive Date: 20180316
  Receipt Date: 20180316
  Transmission Date: 20180509
  Serious: Yes (Other)
  Sender: FDA-Public Use
  Company Number: US-MYLANLABS-2018M1015382

PATIENT
  Age: 69 Year
  Sex: Male

DRUGS (1)
  1. FENTANYL. [Suspect]
     Active Substance: FENTANYL
     Indication: PAIN
     Route: 062

REACTIONS (6)
  - Epistaxis [Unknown]
  - Contusion [Unknown]
  - White blood cell count decreased [Unknown]
  - Haemorrhage [Unknown]
  - Platelet count decreased [Unknown]
  - Drug ineffective [Unknown]
